FAERS Safety Report 7256631-7 (Version None)
Quarter: 2011Q1

REPORT INFORMATION
  Report Type: 
  Country: None (occurrence: None)
  Receive Date: 20110129
  Receipt Date: 20100804
  Transmission Date: 20110831
  Serious: No
  Sender: FDA-Public Use
  Company Number: US-ABBOTT-10P-163-0662850-00

PATIENT
  Age: 58 Year
  Sex: Female
  Weight: 68.554 kg

DRUGS (4)
  1. SORIATANE [Concomitant]
     Indication: PRODUCT USED FOR UNKNOWN INDICATION
  2. METOPROLOL [Concomitant]
     Indication: PRODUCT USED FOR UNKNOWN INDICATION
     Route: 048
  3. HUMIRA [Suspect]
     Indication: PSORIASIS
     Dosage: IN 8 DAYS, 40MG 2ND DOSE; 40MG EOW AFTER THAT.
     Route: 058
     Dates: start: 20100804, end: 20100804
  4. LIPITOR [Concomitant]
     Indication: PRODUCT USED FOR UNKNOWN INDICATION
     Route: 048

REACTIONS (3)
  - INJECTION SITE PAIN [None]
  - DIZZINESS [None]
  - FLUSHING [None]
